FAERS Safety Report 9405437 (Version 3)
Quarter: 2013Q3

REPORT INFORMATION
  Report Type: Spontaneous
  Country: JP (occurrence: JP)
  Receive Date: 20130715
  Receipt Date: 20130925
  Transmission Date: 20140515
  Serious: Yes (Hospitalization, Other)
  Sender: FDA-Public Use
  Company Number: JP-012279

PATIENT
  Age: 78 Year
  Sex: Male

DRUGS (7)
  1. DEGARELIX [Suspect]
     Indication: PROSTATE CANCER
     Dosage: 240 MG 1X SUBCUTANEOUS)
     Dates: start: 20130501, end: 20130501
  2. MENECIT [Concomitant]
  3. GASMOTIN [Concomitant]
  4. MIRAPEX LA [Concomitant]
  5. TAKEPRON [Concomitant]
  6. CASODEX [Concomitant]
  7. ZOMETA [Concomitant]

REACTIONS (2)
  - Intentional drug misuse [None]
  - Hepatic function abnormal [None]
